FAERS Safety Report 16859530 (Version 3)
Quarter: 2019Q4

REPORT INFORMATION
  Report Type: Report from Study
  Country: None (occurrence: DE)
  Receive Date: 20190927
  Receipt Date: 20191010
  Transmission Date: 20200122
  Serious: Yes (Death, Hospitalization)
  Sender: FDA-Public Use
  Company Number: DE-ABBVIE-19K-062-2939881-00

PATIENT
  Age: 81 Year
  Sex: Male

DRUGS (2)
  1. DUODOPA [Suspect]
     Active Substance: CARBIDOPA\LEVODOPA
     Indication: PARKINSON^S DISEASE
     Dosage: MD: 9.0 ML; CRD: 2.5 ML/H; ED: 1.5 ML, FROM 7 A.M. TO 10 P.M. CONTINUOUSLY
     Route: 050
     Dates: start: 20190919, end: 201909
  2. DUODOPA [Suspect]
     Active Substance: CARBIDOPA\LEVODOPA
     Dosage: MD: 9.0 ML; CRD: 2.5 ML/H; ED: 1.5 ML, FROM 7 A.M. TO 10 P.M. CONTINUOUSLY
     Route: 050
     Dates: start: 201909

REACTIONS (4)
  - Dysphagia [Fatal]
  - Respiratory failure [Fatal]
  - Pneumonia [Fatal]
  - C-reactive protein increased [Fatal]

NARRATIVE: CASE EVENT DATE: 201909
